FAERS Safety Report 10258022 (Version 1)
Quarter: 2014Q2

REPORT INFORMATION
  Report Type: Spontaneous
  Country: US (occurrence: US)
  Receive Date: 20140625
  Receipt Date: 20140625
  Transmission Date: 20141212
  Serious: No
  Sender: FDA-Public Use
  Company Number: US-PFIZER INC-2014171961

PATIENT
  Age: 55 Year
  Sex: Female
  Weight: 43.54 kg

DRUGS (30)
  1. LYRICA [Suspect]
     Indication: FIBROMYALGIA
     Dosage: 100 MG, 3X/DAY
     Route: 048
     Dates: end: 201406
  2. LYRICA [Suspect]
     Indication: NEUROPATHY PERIPHERAL
  3. PHRENILIN [Concomitant]
     Dosage: UNK
  4. NORVASC [Concomitant]
     Dosage: UNK
  5. ZOCOR [Concomitant]
     Dosage: UNK
  6. MAXZIDE [Concomitant]
     Dosage: UNK
  7. NEXIUM [Concomitant]
     Dosage: UNK
  8. SUCRALFATE [Concomitant]
     Dosage: UNK
  9. REQUIP [Concomitant]
     Dosage: UNK
  10. PREDNISONE [Concomitant]
     Dosage: UNK
  11. RHINOCORT [Concomitant]
     Dosage: UNK
  12. RESTASIS [Concomitant]
     Dosage: UNK
  13. ULTRAM [Concomitant]
     Dosage: UNK
  14. MOBIC [Concomitant]
     Dosage: UNK
  15. XANAX [Concomitant]
     Dosage: UNK
  16. LORAZEPAM [Concomitant]
     Dosage: UNK
  17. FUROSEMIDE [Concomitant]
     Dosage: UNK
  18. DALIUM [Concomitant]
     Dosage: UNK
  19. KLOR-CON [Concomitant]
     Dosage: UNK
  20. PLAQUENIL [Concomitant]
     Dosage: UNK
  21. METHOTREXATE [Concomitant]
     Dosage: UNK
  22. FOLIC ACID [Concomitant]
     Dosage: UNK
  23. ZOMIG [Concomitant]
     Dosage: UNK
  24. ALBUTEROL [Concomitant]
     Dosage: UNK
  25. VITAMIN D3 [Concomitant]
     Dosage: UNK
  26. CALCIUM [Concomitant]
     Dosage: UNK
  27. VITAMIN B12 [Concomitant]
     Dosage: UNK
  28. VITAMIN E [Concomitant]
     Dosage: UNK
  29. CINNAMON [Concomitant]
     Dosage: UNK
  30. SOMA [Concomitant]
     Dosage: UNK

REACTIONS (3)
  - Blood potassium decreased [Unknown]
  - Pain [Unknown]
  - Paraesthesia [Unknown]
